FAERS Safety Report 5956742-X (Version None)
Quarter: 2008Q4

REPORT INFORMATION
  Report Type: 
  Country: None (occurrence: None)
  Receive Date: 20081118
  Receipt Date: 20081113
  Transmission Date: 20090506
  Serious: Yes (Hospitalization)
  Sender: FDA-Public Use
  Company Number: BR-ABBOTT-08P-020-0487293-00

PATIENT
  Sex: Female
  Weight: 52 kg

DRUGS (8)
  1. DEPAKENE [Suspect]
     Indication: BIPOLAR DISORDER
     Dosage: 1 TABLET DAILY
     Route: 048
  2. DEPAKENE [Suspect]
     Dosage: 2 TABLETS DAILY
     Route: 048
     Dates: end: 20070801
  3. PROPRANOLOL [Concomitant]
     Indication: ARRHYTHMIA
     Dosage: 3 TABLETS PER DAY
     Route: 048
  4. MEDROXYPROGESTERONE [Concomitant]
     Indication: ENDOMETRIOSIS
  5. LITHIUM CARBONATE [Concomitant]
     Indication: BIPOLAR DISORDER
     Route: 048
     Dates: start: 20050101
  6. AMITRIPTYLINE HCL [Concomitant]
     Indication: BIPOLAR DISORDER
     Dosage: 1 TABLET PER DAY
     Route: 048
     Dates: start: 20040101
  7. CLONAZEPAM [Concomitant]
     Indication: BIPOLAR DISORDER
     Dosage: 1 TABLET PER DAY
     Route: 048
     Dates: start: 20040101
  8. MESALAMINE [Concomitant]
     Indication: DRUG USE FOR UNKNOWN INDICATION
     Dosage: 3 TABLETS PER DAY
     Route: 048

REACTIONS (10)
  - ALOPECIA [None]
  - ASTHENIA [None]
  - CROHN'S DISEASE [None]
  - DIZZINESS [None]
  - FALL [None]
  - HAEMATEMESIS [None]
  - HEADACHE [None]
  - PANCREATITIS [None]
  - SOMNOLENCE [None]
  - WOUND [None]
